FAERS Safety Report 10142934 (Version 1)
Quarter: 2014Q2

REPORT INFORMATION
  Report Type: Spontaneous
  Country: JP (occurrence: JP)
  Receive Date: 20140430
  Receipt Date: 20140430
  Transmission Date: 20141212
  Serious: Yes (Other)
  Sender: FDA-Public Use
  Company Number: JP-JNJFOC-20140414704

PATIENT
  Age: 61 Year
  Sex: Female
  Weight: 55 kg

DRUGS (5)
  1. RISPERDAL [Suspect]
     Indication: SCHIZOPHRENIA
     Route: 048
  2. HALOMONTH [Suspect]
     Indication: SCHIZOPHRENIA
     Route: 030
  3. IMPROMEN [Suspect]
     Indication: SCHIZOPHRENIA
     Route: 048
  4. LEVOMEPROMAZINE [Concomitant]
     Indication: SCHIZOPHRENIA
     Route: 048
  5. OLANZAPINE [Concomitant]
     Indication: SCHIZOPHRENIA
     Route: 048

REACTIONS (5)
  - Volvulus [Recovering/Resolving]
  - Constipation [Unknown]
  - Leukocytosis [Unknown]
  - Gastrointestinal necrosis [Recovering/Resolving]
  - Haemorrhagic ascites [Recovering/Resolving]
